FAERS Safety Report 8609538 (Version 2)
Quarter: 2014Q1

REPORT INFORMATION
  Report Type: Spontaneous
  Country: US (occurrence: None)
  Receive Date: 20120323
  Receipt Date: 20130305
  Transmission Date: 20141002
  Serious: Yes (Hospitalization)
  Sender: FDA-Public Use
  Company Number: 163-21880-11114253

PATIENT
  Age: 71 Year
  Sex: Female

DRUGS (8)
  1. REVLIMID [Suspect]
     Indication: PLASMA CELL MYELOMA
     Dosage: 25 MG, X 21 DAYS, ORAL ; 25 MG, X 21 DAYS, PO ; 15 MG, QD X 21 DAYS, PO
     Route: 048
     Dates: start: 200901
  2. DEXAMETHASONE (DEXAMETHASONE) [Concomitant]
  3. SYNTHROID [Concomitant]
  4. ASPIRIN (ACETYLSALICYLIC ACID) [Concomitant]
  5. SENIOR VITAMINS (MULTIVITAMINS) [Concomitant]
  6. AZITHROMYCIN [Concomitant]
  7. LEVOXYL [Concomitant]
  8. SMZ-TMP DS (BACTRIM) [Concomitant]

REACTIONS (2)
  - Anaemia [None]
  - Thrombocytopenia [None]
